FAERS Safety Report 8873862 (Version 1)
Quarter: 2012Q4

REPORT INFORMATION
  Report Type: 
  Country: CA (occurrence: CA)
  Receive Date: 20121030
  Receipt Date: 20121030
  Transmission Date: 20130627
  Serious: Yes (Death, Other)
  Sender: FDA-Public Use
  Company Number: CA-ARROW-2012-18419

PATIENT
  Sex: Male

DRUGS (6)
  1. HYDROXYCHLOROQUINE SULFATE (WATSON LABORATORIES) [Suspect]
     Indication: SYSTEMIC SCLEROSIS
     Dosage: UNK
     Route: 065
  2. MYCOPHENOLATE MOFETIL (UNKNOWN) [Suspect]
     Indication: SYSTEMIC SCLEROSIS
     Dosage: UNK
     Route: 065
  3. ETANERCEPT [Suspect]
     Indication: SYSTEMIC SCLEROSIS
     Dosage: UNK
     Route: 065
  4. ETANERCEPT [Suspect]
     Indication: ARTHRITIS
  5. METHOTREXATE [Suspect]
     Indication: SYSTEMIC SCLEROSIS
     Dosage: UNK
     Route: 065
  6. METHOTREXATE [Suspect]
     Indication: ARTHRITIS

REACTIONS (1)
  - Basal cell carcinoma [Unknown]
